FAERS Safety Report 9434778 (Version 2)
Quarter: 2013Q3

REPORT INFORMATION
  Report Type: Spontaneous
  Country: US (occurrence: US)
  Receive Date: 20130801
  Receipt Date: 20130915
  Transmission Date: 20140515
  Serious: Yes (Other)
  Sender: FDA-Public Use
  Company Number: US-PFIZER INC-2013223977

PATIENT
  Age: 37 Year
  Sex: Female
  Weight: 86.17 kg

DRUGS (2)
  1. ADVIL PM [Suspect]
     Indication: INFLUENZA
     Dosage: 200 MG, 4X/DAY
     Dates: end: 2013
  2. SULFUR [Suspect]
     Dosage: UNK
     Dates: start: 201306, end: 201306

REACTIONS (5)
  - Accidental exposure to product [Unknown]
  - Apparent death [Unknown]
  - Hypersensitivity [Unknown]
  - Product quality issue [Unknown]
  - Overdose [Unknown]
